FAERS Safety Report 9221647 (Version 1)
Quarter: 2013Q2

REPORT INFORMATION
  Report Type: Spontaneous
  Country: GB (occurrence: None)
  Receive Date: 20130408
  Receipt Date: 20130408
  Transmission Date: 20140414
  Serious: Yes (Other)
  Sender: FDA-Public Use
  Company Number: FK201301021

PATIENT
  Age: 60 Year
  Sex: Female

DRUGS (9)
  1. LEVOTHYROXINE SODIUM [Suspect]
     Indication: PRODUCT USED FOR UNKNOWN INDICATION
  2. PARACETAMOL [Suspect]
     Indication: PRODUCT USED FOR UNKNOWN INDICATION
     Dosage: 500 MG, AS NECESSARY
  3. AMLODIPINE [Suspect]
     Indication: PRODUCT USED FOR UNKNOWN INDICATION
  4. ASPIRIN [Suspect]
     Dosage: 75 MG, AS NECESSARY
  5. DIAZEPAM (DIAZEPAM) (DIAZEPAM) [Suspect]
     Indication: PRODUCT USED FOR UNKNOWN INDICATION
     Dosage: 2 MG, AS NECESSARY
  6. LITHIUM CARBONATE [Suspect]
     Indication: PRODUCT USED FOR UNKNOWN INDICATION
  7. SEROQUEL [Suspect]
     Indication: PRODUCT USED FOR UNKNOWN INDICATION
  8. SERTRALINE (SERTRALINE) (SERTRALINE) [Suspect]
     Indication: PRODUCT USED FOR UNKNOWN INDICATION
  9. VENTOLIN [Suspect]
     Indication: PRODUCT USED FOR UNKNOWN INDICATION
     Dosage: 100 UG, AS NECESSARY

REACTIONS (8)
  - Tardive dyskinesia [None]
  - Balance disorder [None]
  - Disturbance in attention [None]
  - Swollen tongue [None]
  - Salivary hypersecretion [None]
  - Cough [None]
  - Radial nerve palsy [None]
  - Tremor [None]
